FAERS Safety Report 24555952 (Version 1)
Quarter: 2024Q4

REPORT INFORMATION
  Report Type: Spontaneous
  Country: US (occurrence: None)
  Receive Date: 20241028
  Receipt Date: 20241028
  Transmission Date: 20250114
  Serious: Yes (Other)
  Sender: Public
  Company Number: None

PATIENT
  Sex: Female

DRUGS (11)
  1. KESIMPTA [Suspect]
     Active Substance: OFATUMUMAB
     Indication: Multiple sclerosis
     Dosage: OTHER QUANTITY : ONE PEN ;?OTHER FREQUENCY : EVERY 28 DAYS;?
     Route: 058
  2. AJOVY [Concomitant]
     Active Substance: FREMANEZUMAB-VFRM
  3. ASPIRIN [Concomitant]
     Active Substance: ASPIRIN
  4. BACLOFEN [Concomitant]
  5. BENADRYL [Concomitant]
     Active Substance: DIPHENHYDRAMINE HYDROCHLORIDE
  6. CALCIUM [Concomitant]
  7. CBD KINGS [Concomitant]
  8. CYMBALTA [Concomitant]
  9. ESTRADOL [Concomitant]
  10. KEPPRA [Concomitant]
     Active Substance: LEVETIRACETAM
  11. KETOROLAC SOL [Concomitant]

REACTIONS (10)
  - Seizure [None]
  - Fall [None]
  - Multiple sclerosis [None]
  - Cognitive disorder [None]
  - Depression [None]
  - Mobility decreased [None]
  - Musculoskeletal stiffness [None]
  - Muscle spasticity [None]
  - Fatigue [None]
  - Nonspecific reaction [None]
